FAERS Safety Report 9304938 (Version 1)
Quarter: 2013Q2

REPORT INFORMATION
  Report Type: Spontaneous
  Country: US (occurrence: None)
  Receive Date: 20130521
  Receipt Date: 20130521
  Transmission Date: 20140414
  Serious: Yes (Hospitalization)
  Sender: FDA-Public Use
  Company Number: None

PATIENT
  Age: 2 Year
  Sex: Female
  Weight: 12.9 kg

DRUGS (1)
  1. PEGASPARGASE [Suspect]
     Indication: ACUTE LYMPHOCYTIC LEUKAEMIA
     Dosage: 1475 UNITS IV DRIP

REACTIONS (8)
  - Cough [None]
  - Pain [None]
  - Erythema [None]
  - Cyanosis [None]
  - Oropharyngeal pain [None]
  - Neck pain [None]
  - Oxygen saturation decreased [None]
  - Alopecia [None]
